FAERS Safety Report 4951588-3 (Version None)
Quarter: 2006Q1

REPORT INFORMATION
  Report Type: 
  Country: None (occurrence: None)
  Receive Date: 20060323
  Receipt Date: 20060314
  Transmission Date: 20060701
  Serious: Yes (Other)
  Sender: FDA-Public Use
  Company Number: JP-BRISTOL-MYERS SQUIBB COMPANY-13320619

PATIENT
  Age: 64 Year
  Sex: Male

DRUGS (11)
  1. ENDOXAN [Suspect]
     Indication: ADULT T-CELL LYMPHOMA/LEUKAEMIA
     Dates: start: 20030101
  2. PREDONINE [Concomitant]
     Indication: ADULT T-CELL LYMPHOMA/LEUKAEMIA
     Dates: start: 20030101
  3. ONCOVIN [Concomitant]
     Indication: ADULT T-CELL LYMPHOMA/LEUKAEMIA
     Dates: start: 20030101
  4. ETOPOSIDE [Concomitant]
     Indication: ADULT T-CELL LYMPHOMA/LEUKAEMIA
     Dates: start: 20030101
  5. ADRIACIN [Concomitant]
     Indication: ADULT T-CELL LYMPHOMA/LEUKAEMIA
     Dates: start: 20030101
  6. RANIMUSTINE [Concomitant]
     Indication: ADULT T-CELL LYMPHOMA/LEUKAEMIA
  7. VINDESINE [Concomitant]
     Indication: ADULT T-CELL LYMPHOMA/LEUKAEMIA
  8. CARBOPLATIN [Concomitant]
     Indication: ADULT T-CELL LYMPHOMA/LEUKAEMIA
  9. FLUDARA [Concomitant]
     Indication: STEM CELL TRANSPLANT
     Dates: start: 20030101
  10. MABLIN [Concomitant]
     Indication: STEM CELL TRANSPLANT
  11. RADIOTHERAPY [Concomitant]

REACTIONS (2)
  - LARGE INTESTINE CARCINOMA [None]
  - TREATMENT RELATED SECONDARY MALIGNANCY [None]
